FAERS Safety Report 7784329-5 (Version None)
Quarter: 2011Q3

REPORT INFORMATION
  Report Type: 
  Country: None (occurrence: None)
  Receive Date: 20110928
  Receipt Date: 20110916
  Transmission Date: 20111222
  Serious: Yes (Hospitalization)
  Sender: FDA-Public Use
  Company Number: PHHY2011FR82912

PATIENT
  Sex: Male

DRUGS (6)
  1. LYRICA [Concomitant]
     Dosage: 150 MG, QID
  2. SOTALOL HCL [Concomitant]
     Dosage: 40 MG, QD
  3. TASIGNA [Suspect]
     Indication: CHRONIC MYELOID LEUKAEMIA
     Dosage: 400 MG, BID
     Route: 048
     Dates: start: 20090625
  4. CRESTOR [Concomitant]
     Dosage: 5 MG, QD
  5. PRAXILENE [Concomitant]
     Dosage: 200 MG, BID
  6. PREVISCAN [Concomitant]
     Dosage: 40 MG, QD

REACTIONS (4)
  - DYSPNOEA EXERTIONAL [None]
  - PLEURAL EFFUSION [None]
  - PYREXIA [None]
  - ASTHENIA [None]
